FAERS Safety Report 13778740 (Version 3)
Quarter: 2020Q1

REPORT INFORMATION
  Report Type: Spontaneous
  Country: US (occurrence: US)
  Receive Date: 20170721
  Receipt Date: 20200313
  Transmission Date: 20200409
  Serious: Yes (Hospitalization)
  Sender: FDA-Public Use
  Company Number: US-PFIZER INC-2017308315

PATIENT
  Age: 74 Year
  Sex: Female

DRUGS (5)
  1. METHOTREXATE SODIUM. [Suspect]
     Active Substance: METHOTREXATE SODIUM
     Dosage: 15 MG, WEEKLY
  2. AMIODARONE [Concomitant]
     Active Substance: AMIODARONE
     Dosage: 100 MG, 1X/DAY
     Dates: start: 2018
  3. XARELTO [Concomitant]
     Active Substance: RIVAROXABAN
     Dosage: 20 MG, 1X/DAY
     Dates: start: 2018
  4. FUROSEMIDE. [Concomitant]
     Active Substance: FUROSEMIDE
     Dosage: 20 MG, UNK (3 DAY A WEEK ONLY)
     Dates: start: 2018
  5. XELJANZ XR [Suspect]
     Active Substance: TOFACITINIB CITRATE
     Indication: RHEUMATOID ARTHRITIS
     Dosage: 11 MG, 1X/DAY

REACTIONS (18)
  - Nausea [Unknown]
  - Synovitis [Unknown]
  - Muscle spasms [Unknown]
  - Joint stiffness [Unknown]
  - Myalgia [Unknown]
  - Joint range of motion decreased [Unknown]
  - Rhinorrhoea [Unknown]
  - Joint swelling [Unknown]
  - Arthralgia [Unknown]
  - Abdominal pain [Unknown]
  - Vertebral osteophyte [Unknown]
  - Osteoporosis [Unknown]
  - Fatigue [Unknown]
  - Vomiting [Unknown]
  - Tachycardia [Unknown]
  - Spinal osteoarthritis [Unknown]
  - Sneezing [Unknown]
  - Gait disturbance [Unknown]
